FAERS Safety Report 8069566-7 (Version None)
Quarter: 2012Q1

REPORT INFORMATION
  Report Type: 
  Country: None (occurrence: None)
  Receive Date: 20120125
  Receipt Date: 20120117
  Transmission Date: 20120608
  Serious: Yes (Other)
  Sender: FDA-Public Use
  Company Number: CHPA2012US001512

PATIENT
  Age: 74 Year
  Sex: Female
  Weight: 102.4 kg

DRUGS (1)
  1. EXCEDRIN EXTRA STRENGTH TABLETS [Suspect]
     Indication: PAIN
     Dosage: 0.5 DF, QD
     Route: 048
     Dates: start: 19910101, end: 20120109

REACTIONS (12)
  - FEELING HOT [None]
  - DECREASED APPETITE [None]
  - HEART RATE INCREASED [None]
  - WEIGHT DECREASED [None]
  - NERVOUSNESS [None]
  - CONSTIPATION [None]
  - ABDOMINAL PAIN UPPER [None]
  - DRUG DEPENDENCE [None]
  - UNDERDOSE [None]
  - DRY MOUTH [None]
  - WRONG TECHNIQUE IN DRUG USAGE PROCESS [None]
  - INCORRECT DRUG ADMINISTRATION DURATION [None]
